FAERS Safety Report 15569453 (Version 1)
Quarter: 2018Q4

REPORT INFORMATION
  Report Type: Report from Study
  Country: JP (occurrence: JP)
  Receive Date: 20181031
  Receipt Date: 20181031
  Transmission Date: 20190205
  Serious: Yes (Other)
  Sender: FDA-Public Use
  Company Number: JP-ROCHE-2205719

PATIENT
  Sex: Female

DRUGS (1)
  1. BEVACIZUMAB. [Suspect]
     Active Substance: BEVACIZUMAB
     Indication: GENITAL NEOPLASM MALIGNANT FEMALE
     Route: 065

REACTIONS (12)
  - Febrile neutropenia [Unknown]
  - Intestinal perforation [Unknown]
  - Embolism venous [Unknown]
  - Pneumonia [Unknown]
  - Seizure [Unknown]
  - Proteinuria [Unknown]
  - Ileus [Unknown]
  - Embolism arterial [Unknown]
  - Hypertension [Unknown]
  - Epistaxis [Unknown]
  - Neutropenia [Unknown]
  - Anaemia [Unknown]
